FAERS Safety Report 22284937 (Version 1)
Quarter: 2023Q2

REPORT INFORMATION
  Report Type: Spontaneous
  Country: US (occurrence: None)
  Receive Date: 20230503
  Receipt Date: 20230503
  Transmission Date: 20230722
  Serious: No
  Sender: FDA-Public Use
  Company Number: None

PATIENT
  Sex: 0

DRUGS (1)
  1. EZETIMIBE [Suspect]
     Active Substance: EZETIMIBE

REACTIONS (6)
  - Fatigue [None]
  - Dizziness [None]
  - Dry mouth [None]
  - Tinnitus [None]
  - Abnormal faeces [None]
  - Rash [None]
